FAERS Safety Report 16878922 (Version 4)
Quarter: 2020Q3

REPORT INFORMATION
  Report Type: Report from Study
  Country: AU (occurrence: AU)
  Receive Date: 20191002
  Receipt Date: 20200624
  Transmission Date: 20201105
  Serious: Yes (Hospitalization)
  Sender: FDA-Public Use
  Company Number: AU-ROCHE-2378752

PATIENT
  Age: 67 Year
  Sex: Male
  Weight: 69.2 kg

DRUGS (29)
  1. HEPARIN [Concomitant]
     Active Substance: HEPARIN SODIUM
     Indication: ANGIOCARDIOGRAM
  2. TRAMADOL [TRAMADOL HYDROCHLORIDE] [Concomitant]
     Active Substance: TRAMADOL HYDROCHLORIDE
     Indication: HAEMOPHILIC ARTHROPATHY
  3. ENDONE [Concomitant]
     Active Substance: OXYCODONE HYDROCHLORIDE
     Indication: HAEMOPHILIC ARTHROPATHY
     Route: 048
  4. CHONDROITIN [Concomitant]
     Active Substance: CHONDROITIN
     Indication: HAEMARTHROSIS
     Route: 048
  5. HYDROCORTISONE. [Concomitant]
     Active Substance: HYDROCORTISONE
     Indication: RASH
  6. TRANEXAMIC ACID. [Concomitant]
     Active Substance: TRANEXAMIC ACID
  7. MIDAZOLAM. [Concomitant]
     Active Substance: MIDAZOLAM
     Indication: ANGIOCARDIOGRAM
  8. EMICIZUMAB. [Suspect]
     Active Substance: EMICIZUMAB
     Indication: HAEMOPHILIA A WITHOUT INHIBITORS
     Dosage: ON 01/AUG/2019, HE RECEIVED MOST RECENT DOSE OF EMICIZUMAB 1.38 ML PRIOR TO AE ONSET WAS TAKEN.
     Route: 058
     Dates: start: 20161027
  9. IRBESARTAN. [Concomitant]
     Active Substance: IRBESARTAN
     Indication: HYPERTENSION
     Route: 048
     Dates: end: 20190807
  10. GLUCOSAMINE AND CHONDROITIN [Concomitant]
     Active Substance: CHONDROITIN SULFATE (BOVINE)\GLUCOSAMINE HYDROCHLORIDE
     Indication: HAEMOPHILIC ARTHROPATHY
     Route: 048
  11. DOCUSATE;SENNA [Concomitant]
     Indication: CONSTIPATION
  12. LACTULOSE. [Concomitant]
     Active Substance: LACTULOSE
     Indication: CONSTIPATION
  13. ALBUMIN [Concomitant]
     Active Substance: ALBUMIN HUMAN
     Indication: HYPOALBUMINAEMIA
  14. TEMAZEPAM. [Concomitant]
     Active Substance: TEMAZEPAM
     Indication: INSOMNIA
  15. MOVICOL [Concomitant]
     Active Substance: POLYETHYLENE GLYCOL 3350\POTASSIUM CHLORIDE\SODIUM BICARBONATE\SODIUM CHLORIDE
     Indication: CONSTIPATION
  16. ONDANSETRON [Concomitant]
     Active Substance: ONDANSETRON
     Indication: NAUSEA
  17. FENTANYL. [Concomitant]
     Active Substance: FENTANYL
     Indication: PAIN MANAGEMENT
  18. PANTOPRAZOLE [Concomitant]
     Active Substance: PANTOPRAZOLE
     Indication: DIVERTICULUM
     Route: 048
     Dates: start: 20150106, end: 20200510
  19. TRAMADOL. [Concomitant]
     Active Substance: TRAMADOL
     Indication: PAIN IN EXTREMITY
  20. OXYCODONE [Concomitant]
     Active Substance: OXYCODONE
     Indication: ANALGESIC THERAPY
  21. GLYCERYL TRINITRATE [Concomitant]
     Active Substance: NITROGLYCERIN
  22. RED BLOOD CELLS [Concomitant]
     Active Substance: HUMAN RED BLOOD CELL
  23. FISH OIL [Concomitant]
     Active Substance: FISH OIL
     Indication: HAEMOPHILIC ARTHROPATHY
     Route: 048
  24. VENTOLIN [Concomitant]
     Active Substance: ALBUTEROL SULFATE
     Indication: ASTHMA
  25. CRYOPRECIPITATE [Concomitant]
     Active Substance: CRYOPRECIPITATED ANTIHEMOPHILIC FACTOR (HUMAN)
  26. CETIRIZINE [Concomitant]
     Active Substance: CETIRIZINE HYDROCHLORIDE
     Indication: RASH
  27. PARACETAMOL [Concomitant]
     Active Substance: ACETAMINOPHEN
     Indication: ANALGESIC THERAPY
  28. FRESH FROZEN PLASMA [Concomitant]
     Active Substance: HUMAN PLASMA
  29. PLATELETS [Concomitant]
     Active Substance: HUMAN PLATELET, ALLOGENIC

REACTIONS (1)
  - Acute myocardial infarction [Recovered/Resolved with Sequelae]

NARRATIVE: CASE EVENT DATE: 20190809
